FAERS Safety Report 7555018-7 (Version None)
Quarter: 2011Q2

REPORT INFORMATION
  Report Type: 
  Country: None (occurrence: None)
  Receive Date: 20110610
  Receipt Date: 20110530
  Transmission Date: 20111010
  Serious: Yes (Other)
  Sender: FDA-Public Use
  Company Number: JP-2011-10669

PATIENT
  Age: 85 Year
  Sex: Male
  Weight: 36 kg

DRUGS (10)
  1. SELARA (EPLERENONE) [Concomitant]
  2. LASIX [Concomitant]
  3. SAMSCA [Suspect]
     Indication: CARDIAC FAILURE CONGESTIVE
     Dosage: 7.5 MG MILLIGRAM(S), QD, ORAL; 15 MG MILLIGRAM(S), QD, ORAL
     Route: 048
     Dates: start: 20110331, end: 20110403
  4. SAMSCA [Suspect]
     Indication: CARDIAC FAILURE CONGESTIVE
     Dosage: 7.5 MG MILLIGRAM(S), QD, ORAL; 15 MG MILLIGRAM(S), QD, ORAL
     Route: 048
     Dates: start: 20110404, end: 20110410
  5. PAXIL [Concomitant]
  6. MUCODYNE (CARBOCISTEINE) TABLET [Concomitant]
  7. SOLOMUCO (AMBROXOL HYDROCHLORIDE) TABLET [Concomitant]
  8. LUPRAC (TORASEMIDE) TABLET [Concomitant]
  9. PARIET (RABEPRAZOLE SODIUM) TABLET [Concomitant]
  10. COVERSYL (PERINDOPRIL ERBUMINE) TABLET [Concomitant]

REACTIONS (3)
  - EOSINOPHILIA [None]
  - TOXIC SKIN ERUPTION [None]
  - SKIN EXFOLIATION [None]
